FAERS Safety Report 9236539 (Version 2)
Quarter: 2013Q2

REPORT INFORMATION
  Report Type: Report from Study
  Country: AU (occurrence: AU)
  Receive Date: 20130417
  Receipt Date: 20130509
  Transmission Date: 20140414
  Serious: Yes (Other)
  Sender: FDA-Public Use
  Company Number: AU-ROCHE-1215356

PATIENT
  Age: 61 Year
  Sex: Female

DRUGS (10)
  1. ACTEMRA [Suspect]
     Indication: RHEUMATOID ARTHRITIS
     Route: 042
     Dates: start: 20130405
  2. METHOTREXATE [Concomitant]
     Indication: RHEUMATOID ARTHRITIS
     Route: 048
  3. PLAQUENIL [Concomitant]
     Indication: RHEUMATOID ARTHRITIS
     Route: 048
  4. LUPIN (UNK INGREDIENTS) [Concomitant]
     Indication: DEPRESSION
     Route: 048
  5. NATRILIX [Concomitant]
     Indication: HYPERTENSION
     Route: 065
  6. ZANIDIP [Concomitant]
     Indication: HYPERTENSION
  7. PANADOL [Concomitant]
  8. TRAMADOL [Concomitant]
     Route: 065
  9. ENDEP [Concomitant]
     Route: 065
  10. LYRICA [Concomitant]
     Route: 065

REACTIONS (5)
  - Haemoptysis [Unknown]
  - Productive cough [Not Recovered/Not Resolved]
  - Dizziness [Recovered/Resolved]
  - Pyrexia [Recovered/Resolved]
  - Oropharyngeal pain [Unknown]
